FAERS Safety Report 16166078 (Version 1)
Quarter: 2019Q2

REPORT INFORMATION
  Report Type: Spontaneous
  Country: US (occurrence: US)
  Receive Date: 20190406
  Receipt Date: 20190406
  Transmission Date: 20190711
  Serious: Yes (Other)
  Sender: FDA-Public Use
  Company Number: US-TEVA-2019-US-1032736

PATIENT
  Sex: Female
  Weight: 81 kg

DRUGS (5)
  1. IBUPROFEN. [Concomitant]
     Active Substance: IBUPROFEN
     Route: 065
  2. ALEVE [Concomitant]
     Active Substance: NAPROXEN SODIUM
     Route: 065
  3. EXCEDRIN [Concomitant]
     Active Substance: ACETAMINOPHEN\ASPIRIN\CAFFEINE
     Route: 065
  4. TYLENOL [Concomitant]
     Active Substance: ACETAMINOPHEN
     Route: 065
  5. PROPRANOLOL HCL [Suspect]
     Active Substance: PROPRANOLOL HYDROCHLORIDE
     Indication: PREHYPERTENSION
     Route: 065
     Dates: start: 20190305

REACTIONS (13)
  - Bronchitis [Unknown]
  - Amnesia [Unknown]
  - Respiratory rate decreased [Unknown]
  - Therapeutic response unexpected [Unknown]
  - Confusional state [Unknown]
  - Hypotension [Unknown]
  - Loss of employment [Unknown]
  - Pyrexia [Unknown]
  - Weight decreased [Unknown]
  - Mood altered [Unknown]
  - Heart rate increased [Unknown]
  - Erythema [Unknown]
  - Skin irritation [Unknown]

NARRATIVE: CASE EVENT DATE: 20190305
